FAERS Safety Report 21440034 (Version 1)
Quarter: 2022Q4

REPORT INFORMATION
  Report Type: Spontaneous
  Country: US (occurrence: None)
  Receive Date: 20221007
  Receipt Date: 20221007
  Transmission Date: 20230113
  Serious: Yes (Disabling)
  Sender: FDA-Public Use
  Company Number: None

PATIENT
  Age: 70 Year
  Sex: Female
  Weight: 88.65 kg

DRUGS (1)
  1. LISINOPRIL [Suspect]
     Active Substance: LISINOPRIL
     Indication: Blood pressure measurement
     Dosage: OTHER FREQUENCY : 1;?
     Route: 048
     Dates: start: 20220925, end: 20220927

REACTIONS (6)
  - Dizziness [None]
  - Dizziness [None]
  - Nausea [None]
  - Vomiting [None]
  - Vision blurred [None]
  - Product quality issue [None]

NARRATIVE: CASE EVENT DATE: 20220926
